FAERS Safety Report 8207046-6 (Version None)
Quarter: 2012Q1

REPORT INFORMATION
  Report Type: 
  Country: None (occurrence: None)
  Receive Date: 20120314
  Receipt Date: 20120308
  Transmission Date: 20120608
  Serious: Yes (Other)
  Sender: FDA-Public Use
  Company Number: JP-BAYER-201014156BYL

PATIENT
  Age: 67 Year
  Sex: Male
  Weight: 53 kg

DRUGS (18)
  1. BLADDERON [Concomitant]
     Dosage: 400 MG (DAILY DOSE), , ORAL
     Route: 048
     Dates: start: 20100101
  2. HUMALOG [Concomitant]
     Dosage: 46 U (DAILY DOSE), , INTRAVENOUS
     Route: 042
     Dates: start: 20091001
  3. URSO 250 [Concomitant]
     Indication: JAUNDICE
     Dosage: 300 MG (DAILY DOSE), , ORAL
     Route: 048
     Dates: start: 20080101, end: 20100714
  4. FLIVAS [Concomitant]
     Dosage: 75 MG (DAILY DOSE), , ORAL
     Route: 048
  5. STAYBLA [Concomitant]
     Dosage: 0.1 MG (DAILY DOSE), , ORAL
     Route: 048
     Dates: start: 20090101
  6. RABEPRAZOLE SODIUM [Concomitant]
     Dosage: 10 MG (DAILY DOSE), , ORAL
     Route: 048
     Dates: start: 20080101
  7. ALDACTONE [Suspect]
     Indication: PRODUCT USED FOR UNKNOWN INDICATION
     Dosage: UNK
     Route: 048
     Dates: end: 20110101
  8. SORAFENIB [Suspect]
     Dosage: 400 MG (DAILY DOSE), , ORAL
     Route: 048
     Dates: start: 20100910, end: 20101020
  9. LANTUS [Concomitant]
     Dosage: 24 U (DAILY DOSE), , INTRAVENOUS
     Route: 042
     Dates: start: 20091001
  10. URSO 250 [Concomitant]
     Dosage: 600 MG (DAILY DOSE), , ORAL
     Route: 048
     Dates: start: 20100715
  11. SORAFENIB [Suspect]
     Dosage: 600 MG (DAILY DOSE), , ORAL
     Route: 048
     Dates: start: 20101021, end: 20101111
  12. SORAFENIB [Suspect]
  13. PURSENNID [Concomitant]
     Dosage: 24 MG (DAILY DOSE), , ORAL
     Route: 048
     Dates: start: 20090101, end: 20100513
  14. SORAFENIB [Suspect]
     Indication: HEPATIC NEOPLASM MALIGNANT
     Dosage: 400MG BID
     Route: 048
     Dates: start: 20100325, end: 20100630
  15. SORAFENIB [Suspect]
     Dosage: 600 MG (DAILY DOSE), , ORAL
     Route: 048
     Dates: start: 20100701, end: 20100905
  16. HOKUNALIN [Concomitant]
     Indication: COUGH
     Dosage: 2 MG (DAILY DOSE), , TRANSDERMAL
     Route: 062
     Dates: start: 20100701
  17. PAXIL [Concomitant]
     Dosage: 20 MG (DAILY DOSE), , ORAL
     Route: 048
     Dates: start: 20080101
  18. LENDORMIN [Concomitant]
     Dosage: 0.25 MG (DAILY DOSE), , ORAL
     Route: 048
     Dates: start: 20060101

REACTIONS (26)
  - HYPOGLYCAEMIA [None]
  - TINNITUS [None]
  - PRURITUS GENERALISED [None]
  - MUSCLE SPASMS [None]
  - ALOPECIA [None]
  - CHEILITIS [None]
  - DECREASED APPETITE [None]
  - PYREXIA [None]
  - FOLLICULITIS [None]
  - ABDOMINAL PAIN UPPER [None]
  - ABDOMINAL DISTENSION [None]
  - PALMAR-PLANTAR ERYTHRODYSAESTHESIA SYNDROME [None]
  - GLOSSITIS [None]
  - DEHYDRATION [None]
  - PHARYNGITIS [None]
  - STOMATITIS [None]
  - ABDOMINAL PAIN [None]
  - HEADACHE [None]
  - HAEMOPTYSIS [None]
  - HYPERTENSION [None]
  - DIARRHOEA [None]
  - JAUNDICE [None]
  - HYPERTHYROIDISM [None]
  - DEAFNESS [None]
  - COUGH [None]
  - GASTROINTESTINAL OEDEMA [None]
